FAERS Safety Report 7530980-7 (Version None)
Quarter: 2011Q2

REPORT INFORMATION
  Report Type: 
  Country: None (occurrence: None)
  Receive Date: 20110608
  Receipt Date: 20081001
  Transmission Date: 20111010
  Serious: Yes (Other)
  Sender: FDA-Public Use
  Company Number: US-BAYER-2011-006284

PATIENT
  Sex: Male
  Weight: 113 kg

DRUGS (5)
  1. TRASYLOL [Suspect]
     Indication: CORONARY ARTERY BYPASS
     Dosage: UNK
     Route: 042
     Dates: start: 19980501, end: 19980501
  2. TRASYLOL [Suspect]
     Dosage: UNK
     Dates: start: 19970530
  3. ACETYLSALICYLIC ACID SRT [Concomitant]
     Dosage: 1 DAILY
     Route: 048
  4. GLIPIZIDE [Concomitant]
     Dosage: UNK
     Route: 048
     Dates: start: 19920101
  5. ZESTRIL [Concomitant]
     Route: 048

REACTIONS (5)
  - PAIN [None]
  - RENAL FAILURE [None]
  - EMOTIONAL DISTRESS [None]
  - ANXIETY [None]
  - INJURY [None]
